FAERS Safety Report 4849317-7 (Version None)
Quarter: 2005Q4

REPORT INFORMATION
  Report Type: 
  Country: None (occurrence: None)
  Receive Date: 20051209
  Receipt Date: 20051130
  Transmission Date: 20060501
  Serious: Yes (Death, Life-Threatening, Hospitalization)
  Sender: FDA-Public Use
  Company Number: US-JNJFOC-20051201458

PATIENT
  Age: 62 Year
  Sex: Male

DRUGS (14)
  1. MOTRIN [Suspect]
     Indication: DRUG USE FOR UNKNOWN INDICATION
  2. TEGRETOL [Suspect]
     Indication: DRUG USE FOR UNKNOWN INDICATION
  3. NSAIDS [Suspect]
     Indication: DRUG USE FOR UNKNOWN INDICATION
  4. RADIATION THERAPY [Concomitant]
     Indication: ASTROCYTOMA
  5. TEMODAR [Concomitant]
     Indication: ASTROCYTOMA
     Dosage: 75 MG/M^2, ORAL
     Route: 048
  6. NORVASC [Concomitant]
  7. CELEXA [Concomitant]
  8. ZOFRAN [Concomitant]
  9. VANCOMYCIN [Concomitant]
     Indication: PNEUMONIA
  10. ACYCLOVIR [Concomitant]
     Indication: PNEUMONIA
  11. ZOSYN [Concomitant]
  12. ZOSYN [Concomitant]
     Indication: PNEUMONIA
  13. AMPICILLIN [Concomitant]
     Indication: PNEUMONIA
  14. KEPPRA [Concomitant]

REACTIONS (1)
  - NEPHRITIS [None]
